FAERS Safety Report 14027778 (Version 1)
Quarter: 2017Q3

REPORT INFORMATION
  Report Type: Report from Study
  Country: IT (occurrence: IT)
  Receive Date: 20170929
  Receipt Date: 20170929
  Transmission Date: 20171128
  Serious: Yes (Other)
  Sender: FDA-Public Use
  Company Number: IT-ROCHE-1998502

PATIENT

DRUGS (3)
  1. METHYLPREDNISOLONE. [Suspect]
     Active Substance: METHYLPREDNISOLONE
     Indication: MEDICATION OVERUSE HEADACHE
     Route: 042
  2. ESOMEPRAZOLE [Concomitant]
     Active Substance: ESOMEPRAZOLE
     Route: 065
  3. DIAZEPAM. [Suspect]
     Active Substance: DIAZEPAM
     Indication: MEDICATION OVERUSE HEADACHE
     Route: 042

REACTIONS (3)
  - Blood glucose increased [Unknown]
  - Blood pressure increased [Unknown]
  - Insomnia [Unknown]
